FAERS Safety Report 8178053-7 (Version None)
Quarter: 2012Q1

REPORT INFORMATION
  Report Type: 
  Country: None (occurrence: None)
  Receive Date: 20120301
  Receipt Date: 20120227
  Transmission Date: 20120608
  Serious: No
  Sender: FDA-Public Use
  Company Number: US-PFIZER INC-2012051864

PATIENT
  Sex: Female
  Weight: 90.2 kg

DRUGS (3)
  1. GLIPIZIDE [Concomitant]
     Dosage: UNK
  2. LYRICA [Suspect]
     Indication: NEUROPATHY PERIPHERAL
     Dosage: 50 MG, 3X/DAY
     Route: 048
     Dates: start: 20111101
  3. METFORMIN [Concomitant]
     Dosage: UNK

REACTIONS (1)
  - DRY MOUTH [None]
